FAERS Safety Report 8554836-6 (Version None)
Quarter: 2012Q3

REPORT INFORMATION
  Report Type: 
  Country: None (occurrence: None)
  Receive Date: 20120731
  Receipt Date: 20120724
  Transmission Date: 20120928
  Serious: Yes (Hospitalization)
  Sender: FDA-Public Use
  Company Number: US-BAXTER-2012BAX009335

PATIENT
  Sex: Female

DRUGS (1)
  1. DIANEAL PD-2 W/ DEXTROSE 1.5% [Suspect]
     Route: 033
     Dates: start: 20120613

REACTIONS (4)
  - DYSPNOEA [None]
  - PROCEDURAL COMPLICATION [None]
  - GASTROOESOPHAGEAL REFLUX DISEASE [None]
  - FLUID OVERLOAD [None]
